FAERS Safety Report 7322785-7 (Version None)
Quarter: 2011Q1

REPORT INFORMATION
  Report Type: 
  Country: None (occurrence: None)
  Receive Date: 20110301
  Receipt Date: 20110215
  Transmission Date: 20110831
  Serious: Yes (Death, Hospitalization, Other)
  Sender: FDA-Public Use
  Company Number: US-CELGENEUS-163-21880-11021428

PATIENT
  Sex: Male
  Weight: 93 kg

DRUGS (5)
  1. OXYGEN [Concomitant]
     Route: 065
     Dates: start: 20110101
  2. AZACITIDINE [Suspect]
     Dosage: 75 MILLIGRAM/SQ. METER
     Route: 058
     Dates: start: 20101111, end: 20101118
  3. REVLIMID [Suspect]
     Dosage: 50 MILLIGRAM
     Route: 048
     Dates: start: 20100929, end: 20101019
  4. REVLIMID [Suspect]
     Dosage: 50 MILLIGRAM
     Route: 048
     Dates: start: 20110114, end: 20110131
  5. AZACITIDINE [Suspect]
     Dosage: 75 MILLIGRAM/SQ. METER
     Route: 058
     Dates: start: 20100922, end: 20100928

REACTIONS (2)
  - SEPSIS [None]
  - FEBRILE NEUTROPENIA [None]
